FAERS Safety Report 8564131-7 (Version None)
Quarter: 2012Q3

REPORT INFORMATION
  Report Type: 
  Country: None (occurrence: None)
  Receive Date: 20120727
  Receipt Date: 20120727
  Transmission Date: 20120928
  Serious: Yes (Other)
  Sender: FDA-Public Use
  Company Number: None

PATIENT
  Age: 46 Year
  Sex: Female

DRUGS (2)
  1. COPAXONE [Suspect]
  2. COPAXONE [Suspect]
     Indication: MULTIPLE SCLEROSIS
     Dosage: 20MG DAILY SUBCUTANEOUS INJECTION
     Route: 058
     Dates: start: 20120314, end: 20120501

REACTIONS (5)
  - HEADACHE [None]
  - PALPITATIONS [None]
  - CHEST PAIN [None]
  - HOT FLUSH [None]
  - CHILLS [None]
